FAERS Safety Report 6254456-2 (Version None)
Quarter: 2009Q3

REPORT INFORMATION
  Report Type: 
  Country: None (occurrence: None)
  Receive Date: 20090701
  Receipt Date: 20090701
  Transmission Date: 20100115
  Serious: Yes (Other)
  Sender: FDA-Public Use
  Company Number: None

PATIENT
  Age: 64 Year
  Sex: Female
  Weight: 56.6996 kg

DRUGS (1)
  1. NEXIUM [Suspect]
     Indication: OESOPHAGOGASTRIC FUNDOPLASTY
     Dosage: 1 CAPSULE DAILY PO
     Route: 048
     Dates: start: 20090408, end: 20090626

REACTIONS (6)
  - DIZZINESS [None]
  - FATIGUE [None]
  - FOLATE DEFICIENCY [None]
  - RED BLOOD CELL COUNT DECREASED [None]
  - VITAMIN B12 DEFICIENCY [None]
  - VITAMIN D DEFICIENCY [None]
